FAERS Safety Report 14317966 (Version 2)
Quarter: 2018Q1

REPORT INFORMATION
  Report Type: Spontaneous
  Country: US (occurrence: US)
  Receive Date: 20171222
  Receipt Date: 20180104
  Transmission Date: 20180509
  Serious: Yes (Other)
  Sender: FDA-Public Use
  Company Number: US-CELGENEUS-USA-20171206062

PATIENT
  Age: 48 Year
  Sex: Male

DRUGS (3)
  1. OTEZLA [Suspect]
     Active Substance: APREMILAST
     Indication: PSORIASIS
     Dosage: 60 MILLIGRAM
     Route: 048
     Dates: start: 20161107
  2. COSENTYX [Concomitant]
     Active Substance: SECUKINUMAB
     Indication: PSORIASIS
     Route: 065
  3. CYCLOSPORINE. [Concomitant]
     Active Substance: CYCLOSPORINE
     Indication: PSORIASIS
     Route: 065

REACTIONS (2)
  - Cerebrovascular accident [Recovered/Resolved]
  - Intracardiac thrombus [Recovered/Resolved]

NARRATIVE: CASE EVENT DATE: 201704
